FAERS Safety Report 9495745 (Version 1)
Quarter: 2013Q3

REPORT INFORMATION
  Report Type: Report from Study
  Country: JP (occurrence: JP)
  Receive Date: 20130903
  Receipt Date: 20130903
  Transmission Date: 20140515
  Serious: Yes (Hospitalization)
  Sender: FDA-Public Use
  Company Number: JP-BRISTOL-MYERS SQUIBB COMPANY-19226638

PATIENT
  Age: 7 Decade
  Sex: Male

DRUGS (14)
  1. STOCRIN TABS 600 MG [Suspect]
     Indication: HIV INFECTION
     Dosage: FILM COATED TABS
     Route: 048
     Dates: start: 20050727
  2. ISENTRESS [Suspect]
     Indication: HIV INFECTION
     Dosage: ISENTRESS TABLETS 400MG
     Route: 048
     Dates: start: 20091221
  3. ZIAGEN [Suspect]
     Indication: HIV INFECTION
     Route: 048
     Dates: start: 20080625
  4. EPIVIR [Suspect]
     Indication: HIV INFECTION
     Dosage: 300 MG, DIVIDED DOSE?29MAY2000 TO 16JUN2000?12JUL2000 TO 31MAR2003?23JUN2003-ONG
     Route: 048
     Dates: start: 20000529
  5. RENIVACE [Concomitant]
     Dosage: RENIVACE TABLETS?1 DF=10 NO UNITS
  6. NORVASC [Concomitant]
     Dosage: TABS
     Dates: end: 2012
  7. PROBENECID [Concomitant]
     Dosage: TABS
     Dates: end: 2012
  8. MEVALOTIN [Concomitant]
     Dates: end: 2012
  9. MAINTATE [Concomitant]
     Dosage: TABS
  10. MICARDIS [Concomitant]
     Dosage: TABS
  11. FLUITRAN [Concomitant]
     Dosage: TABS
     Dates: end: 2012
  12. CARDENALIN [Concomitant]
     Dosage: TABS
  13. OMEPRAL [Concomitant]
     Dates: end: 2012
  14. CALCIUM CARBONATE [Concomitant]
     Dates: end: 2012

REACTIONS (3)
  - Pneumonia [Recovered/Resolved]
  - Renal failure acute [Recovered/Resolved]
  - Bile duct stone [Recovering/Resolving]
